FAERS Safety Report 6005511-3 (Version None)
Quarter: 2008Q4

REPORT INFORMATION
  Report Type: 
  Country: None (occurrence: None)
  Receive Date: 20081215
  Receipt Date: 20081201
  Transmission Date: 20090506
  Serious: Yes (Other)
  Sender: FDA-Public Use
  Company Number: 2008AL012141

PATIENT

DRUGS (5)
  1. CITALOPRAM HYDROBROMIDE [Suspect]
     Indication: DRUG USE FOR UNKNOWN INDICATION
     Dosage: PO
     Route: 048
  2. BENZODIAZEPINE [Concomitant]
  3. DERIVATES [Concomitant]
  4. ANTIDEPRESSANTS [Concomitant]
  5. CANNABIS [Concomitant]

REACTIONS (3)
  - DRUG TOXICITY [None]
  - INTENTIONAL OVERDOSE [None]
  - TACHYCARDIA [None]
